FAERS Safety Report 5694137-7 (Version None)
Quarter: 2008Q2

REPORT INFORMATION
  Report Type: 
  Country: None (occurrence: None)
  Receive Date: 20080402
  Receipt Date: 20080320
  Transmission Date: 20081010
  Serious: Yes (Other)
  Sender: FDA-Public Use
  Company Number: MEDI-0006687

PATIENT
  Age: 24 Month
  Sex: Male

DRUGS (4)
  1. SYNAGIS [Suspect]
     Dates: start: 20080215, end: 20080215
  2. SYNAGIS [Suspect]
     Dates: start: 20080101, end: 20080317
  3. SYHTHROID (LEVOTHYROXINE SODIUM) [Concomitant]
  4. LASIX [Concomitant]

REACTIONS (1)
  - CONVULSION [None]
